FAERS Safety Report 7364137-X (Version None)
Quarter: 2011Q1

REPORT INFORMATION
  Report Type: 
  Country: None (occurrence: None)
  Receive Date: 20110321
  Receipt Date: 20110317
  Transmission Date: 20110831
  Serious: Yes (Death, Hospitalization, Other)
  Sender: FDA-Public Use
  Company Number: PHHY2011US22194

PATIENT
  Sex: Male

DRUGS (2)
  1. MYFORTIC [Suspect]
     Dosage: UNK
  2. CELLCEPT [Concomitant]
     Dosage: UNK

REACTIONS (2)
  - LYMPHOMA [None]
  - RENAL FAILURE ACUTE [None]
